FAERS Safety Report 9145933 (Version 1)
Quarter: 2013Q1

REPORT INFORMATION
  Report Type: Spontaneous
  Country: FR (occurrence: FR)
  Receive Date: 20130307
  Receipt Date: 20130307
  Transmission Date: 20140127
  Serious: Yes (Hospitalization)
  Sender: FDA-Public Use
  Company Number: FR-BAYER-2013-027960

PATIENT
  Age: 79 Year
  Sex: Male
  Weight: 83 kg

DRUGS (7)
  1. IZILOX [Suspect]
     Indication: BRONCHITIS
     Dosage: UNK
     Route: 048
     Dates: start: 20120410, end: 20120427
  2. KARDEGIC [Concomitant]
     Dosage: 160 MG, QD
     Route: 048
     Dates: start: 20120411
  3. IMUREL [Concomitant]
     Indication: AUTOIMMUNE HEPATITIS
     Dosage: 50 MG, QD
     Route: 048
     Dates: start: 1999
  4. IMPORTAL [Concomitant]
  5. AMLOR [Concomitant]
     Dosage: 10 MG, QD
     Route: 049
  6. FORLAX [Concomitant]
     Indication: CONSTIPATION
     Dosage: 2 DF, UNK
     Route: 048
  7. INEXIUM [Concomitant]
     Dosage: 20 MG, QD
     Route: 048

REACTIONS (1)
  - Epilepsy [Recovered/Resolved]
